FAERS Safety Report 7294829-2 (Version None)
Quarter: 2011Q1

REPORT INFORMATION
  Report Type: 
  Country: None (occurrence: None)
  Receive Date: 20110216
  Receipt Date: 20101117
  Transmission Date: 20110831
  Serious: No
  Sender: FDA-Public Use
  Company Number: US-BAYER-2010-003959

PATIENT
  Sex: Female

DRUGS (2)
  1. MIRENA [Suspect]
     Indication: CONTRACEPTION
     Dosage: 20 MCG/24HR, CONT
     Route: 015
     Dates: start: 20080101
  2. MIRENA [Suspect]
     Dosage: 20 MCG/24HR, UNK
     Route: 015

REACTIONS (3)
  - GENITAL HAEMORRHAGE [None]
  - DEVICE DISLOCATION [None]
  - AMENORRHOEA [None]
